FAERS Safety Report 5471576-0 (Version None)
Quarter: 2007Q3

REPORT INFORMATION
  Report Type: 
  Country: None (occurrence: None)
  Receive Date: 20070928
  Receipt Date: 20070122
  Transmission Date: 20080115
  Serious: No
  Sender: FDA-Public Use
  Company Number: US-BRISTOL-MYERS SQUIBB COMPANY-13651047

PATIENT
  Age: 48 Year
  Sex: Female
  Weight: 151 kg

DRUGS (1)
  1. DEFINITY [Suspect]
     Indication: ECHOCARDIOGRAM
     Dosage: UNDILUTED DOSE OF DEFINITY 1CC
     Route: 042
     Dates: start: 20070119

REACTIONS (2)
  - CHEST DISCOMFORT [None]
  - DYSPNOEA [None]
